FAERS Safety Report 25920718 (Version 2)
Quarter: 2025Q4

REPORT INFORMATION
  Report Type: Spontaneous
  Country: IN (occurrence: IN)
  Receive Date: 20251014
  Receipt Date: 20251114
  Transmission Date: 20260117
  Serious: Yes (Death)
  Sender: PFIZER
  Company Number: IN-PFIZER INC-PV202300125885

PATIENT
  Age: 74 Year
  Sex: Female
  Weight: 80 kg

DRUGS (16)
  1. CRIZOTINIB [Suspect]
     Active Substance: CRIZOTINIB
     Indication: Neoplasm malignant
     Dosage: 200 MG, 2X/DAY (1-0-1, 1 MONTH)
     Route: 048
     Dates: start: 20230715
  2. CRIZOTINIB [Suspect]
     Active Substance: CRIZOTINIB
     Dosage: 250 MG, 2X/DAY, DAILY
     Route: 048
     Dates: start: 20230719, end: 20250924
  3. APIXABAN [Concomitant]
     Active Substance: APIXABAN
     Indication: Anticoagulant therapy
     Dosage: 2.5 MG, 2X/DAY
  4. ASSURANS [Concomitant]
     Indication: Pulmonary hypertension
     Dosage: 20 MG, 2X/DAY
  5. NOVASTAT CV [Concomitant]
     Indication: Anticoagulant therapy
     Dosage: 20 MG, 1X/DAY
  6. NOVASTAT CV [Concomitant]
     Indication: Lipid metabolism disorder
  7. PANTOPRAZOLE SODIUM [Concomitant]
     Active Substance: PANTOPRAZOLE SODIUM
     Indication: Hyperchlorhydria
     Dosage: 40 MG, 1X/DAY
  8. PANTOPRAZOLE SODIUM [Concomitant]
     Active Substance: PANTOPRAZOLE SODIUM
     Indication: Gastritis
  9. GABAPIN NT [Concomitant]
     Indication: Neuralgia
     Dosage: 200/10MG, 1X/DAY
  10. LEVOTHYROXINE [Concomitant]
     Active Substance: LEVOTHYROXINE
     Indication: Thyroid hormone replacement therapy
     Dosage: 25 MG, 1X/DAY
  11. FERROUS FUMARATE\FOLIC ACID\ZINC SULFATE [Concomitant]
     Active Substance: FERROUS FUMARATE\FOLIC ACID\ZINC SULFATE
     Indication: Anaemia
     Dosage: UNK, 1X/DAY
  12. BEPLEX FORTE [ASCORBIC ACID;BIOTIN;CALCIUM PANTOTHENATE;FOLIC ACID;NIC [Concomitant]
     Indication: Supplementation therapy
     Dosage: UNK, 1X/DAY
  13. GEMCAL D3 [Concomitant]
     Indication: Supplementation therapy
     Dosage: UNK, 1X/DAY
  14. ESLIZEN [Concomitant]
     Indication: Seizure
     Dosage: 400 MG, 1X/DAY
  15. ESLIZEN [Concomitant]
     Indication: Neuralgia
  16. TELMA [TELMISARTAN] [Concomitant]
     Indication: Blood pressure abnormal
     Dosage: 20 MG, 1X/DAY

REACTIONS (1)
  - Myocardial infarction [Fatal]

NARRATIVE: CASE EVENT DATE: 20250925
